FAERS Safety Report 6370735-2 (Version None)
Quarter: 2009Q3

REPORT INFORMATION
  Report Type: 
  Country: None (occurrence: None)
  Receive Date: 20090923
  Receipt Date: 20071221
  Transmission Date: 20100115
  Serious: Yes (Other)
  Sender: FDA-Public Use
  Company Number: US-ASTRAZENECA-2006UW26388

PATIENT
  Age: 19149 Day
  Sex: Male
  Weight: 62.6 kg

DRUGS (12)
  1. SEROQUEL [Suspect]
     Indication: ANXIETY
     Route: 048
     Dates: start: 20020101, end: 20060101
  2. SEROQUEL [Suspect]
     Route: 048
     Dates: start: 20040415
  3. RISPERDAL [Concomitant]
     Dates: start: 20070201
  4. REMERON [Concomitant]
  5. CYMBALTA [Concomitant]
  6. ZOLOFT [Concomitant]
  7. LIPITOR [Concomitant]
     Dosage: 10 MG TO 20 MG AT NIGHT
     Route: 048
     Dates: start: 20010712
  8. SINGULAIR [Concomitant]
     Route: 048
     Dates: start: 20060314
  9. SOMA [Concomitant]
     Route: 048
     Dates: start: 20050926
  10. VALIUM [Concomitant]
     Dosage: 10 MG TO 20 MG
     Route: 048
     Dates: start: 20010712
  11. AMITRIPTYLINE [Concomitant]
     Route: 048
     Dates: start: 20050926
  12. PAXIL [Concomitant]
     Route: 048
     Dates: start: 20031205

REACTIONS (2)
  - TARDIVE DYSKINESIA [None]
  - TYPE 2 DIABETES MELLITUS [None]
